FAERS Safety Report 4352484-5 (Version None)
Quarter: 2004Q2

REPORT INFORMATION
  Report Type: 
  Country: None (occurrence: None)
  Receive Date: 20040409
  Receipt Date: 20040127
  Transmission Date: 20050107
  Serious: No
  Sender: FDA-Public Use
  Company Number: PHEH2004US01267

PATIENT
  Age: 21 Year
  Sex: Female

DRUGS (2)
  1. ELIDEL [Suspect]
     Indication: ROSACEA
     Dosage: TOPICAL
     Route: 061
     Dates: start: 20040126
  2. ETHANOL (ETHANOL) [Suspect]

REACTIONS (4)
  - ALCOHOL INTERACTION [None]
  - CONDITION AGGRAVATED [None]
  - DRUG INEFFECTIVE [None]
  - ROSACEA [None]
